FAERS Safety Report 5423048-7 (Version None)
Quarter: 2007Q3

REPORT INFORMATION
  Report Type: 
  Country: None (occurrence: None)
  Receive Date: 20070822
  Receipt Date: 20070813
  Transmission Date: 20080115
  Serious: Yes (Other)
  Sender: FDA-Public Use
  Company Number: FR-PFIZER INC-2007068386

PATIENT
  Sex: Female

DRUGS (3)
  1. TAHOR [Interacting]
  2. ACENOCOUMAROL [Suspect]
     Dosage: TEXT:1/4 TABLET
  3. IXEL [Concomitant]
     Indication: ANTIDEPRESSANT THERAPY

REACTIONS (2)
  - DRUG INTERACTION [None]
  - INTERNATIONAL NORMALISED RATIO INCREASED [None]
